FAERS Safety Report 13993748 (Version 1)
Quarter: 2017Q3

REPORT INFORMATION
  Report Type: Report from Study
  Country: US (occurrence: BR)
  Receive Date: 20170920
  Receipt Date: 20170920
  Transmission Date: 20171128
  Serious: Yes (Hospitalization)
  Sender: FDA-Public Use
  Company Number: US-SUNOVION-2017SUN004115

PATIENT
  Sex: Male
  Weight: 62 kg

DRUGS (1)
  1. INDACATEROL AND GLYCOPYRROLATE [Suspect]
     Active Substance: GLYCOPYRROLATE\INDACATEROL MALEATE
     Indication: EMPHYSEMA
     Dosage: 1 DF (110+50 UNITS NOT PROVIDED), QD; INHALATION
     Route: 055

REACTIONS (2)
  - Pyrexia [Unknown]
  - Dyspnoea [Unknown]
